FAERS Safety Report 8896570 (Version 1)
Quarter: 2012Q4

REPORT INFORMATION
  Report Type: Spontaneous
  Country: US (occurrence: None)
  Receive Date: 20121102
  Receipt Date: 20121102
  Transmission Date: 20130627
  Serious: Yes (Congenital Anomaly)
  Sender: FDA-Public Use
  Company Number: JPI-P-025891

PATIENT
  Sex: Female

DRUGS (1)
  1. XYREM [Suspect]
     Indication: DRUG EXPOSURE IN UTERO

REACTIONS (3)
  - Caesarean section [None]
  - Coarctation of the aorta [None]
  - Maternal drugs affecting foetus [None]
